FAERS Safety Report 15613350 (Version 1)
Quarter: 2018Q4

REPORT INFORMATION
  Report Type: Spontaneous
  Country: AU (occurrence: AU)
  Receive Date: 20181113
  Receipt Date: 20181113
  Transmission Date: 20190205
  Serious: Yes (Other)
  Sender: FDA-Public Use
  Company Number: AU-IMPAX LABORATORIES, LLC-2018-IPXL-03715

PATIENT
  Age: 52 Year
  Sex: Female

DRUGS (10)
  1. CABERGOLINE. [Suspect]
     Active Substance: CABERGOLINE
     Dosage: UNK (HIGH DOSE)
     Route: 065
     Dates: start: 2004
  2. CABERGOLINE. [Suspect]
     Active Substance: CABERGOLINE
     Indication: BLOOD PROLACTIN INCREASED
     Dosage: 2 MILLIGRAM, 1 /WEEK
     Route: 065
     Dates: start: 1997
  3. CORTISONE ACETATE. [Concomitant]
     Active Substance: CORTISONE ACETATE
     Indication: HYPOPITUITARISM
     Dosage: UNK
     Route: 065
  4. CABERGOLINE. [Suspect]
     Active Substance: CABERGOLINE
     Dosage: 3 MILLIGRAM, 1 /WEEK
     Route: 065
  5. CABERGOLINE. [Suspect]
     Active Substance: CABERGOLINE
     Dosage: 6 TO 7 MG WEEKLY (DOSE INCREASED)
     Route: 065
  6. CABERGOLINE. [Suspect]
     Active Substance: CABERGOLINE
     Dosage: UNK (RATE OF 0.5 MG EVERY 6 MONTHS)
     Route: 065
     Dates: start: 2012
  7. CABERGOLINE. [Suspect]
     Active Substance: CABERGOLINE
     Dosage: UNK (PROGRESSIVELY WEANED)
     Route: 065
     Dates: end: 201704
  8. CABERGOLINE. [Suspect]
     Active Substance: CABERGOLINE
     Dosage: 6 MILLIGRAM, 1 /WEEK
     Route: 065
     Dates: start: 2009
  9. THYROXINE [Concomitant]
     Active Substance: LEVOTHYROXINE
     Indication: HYPOPITUITARISM
     Dosage: UNK
     Route: 065
  10. ESTROGEN [Concomitant]
     Active Substance: ESTROGENS
     Indication: HYPOGONADISM
     Dosage: UNK
     Route: 065

REACTIONS (4)
  - Osteopenia [Unknown]
  - Fibula fracture [Unknown]
  - Aortic valve incompetence [Recovering/Resolving]
  - Cardiac valve thickening [Recovering/Resolving]

NARRATIVE: CASE EVENT DATE: 201701
